FAERS Safety Report 11148921 (Version 1)
Quarter: 2015Q2

REPORT INFORMATION
  Report Type: Spontaneous
  Country: GB (occurrence: GB)
  Receive Date: 20150529
  Receipt Date: 20150529
  Transmission Date: 20150821
  Serious: Yes (Death)
  Sender: FDA-Public Use
  Company Number: GB-HOSPIRA-2880925

PATIENT
  Age: 59 Year
  Sex: Male
  Weight: 98 kg

DRUGS (5)
  1. PROPOFOL. [Concomitant]
     Active Substance: PROPOFOL
     Indication: GENERAL ANAESTHESIA
     Route: 042
     Dates: start: 20150324
  2. MORPHINE [Concomitant]
     Active Substance: MORPHINE
     Indication: GENERAL ANAESTHESIA
     Route: 042
     Dates: start: 20150324
  3. FENTANYL. [Concomitant]
     Active Substance: FENTANYL
     Indication: GENERAL ANAESTHESIA
     Route: 042
     Dates: start: 20150324
  4. ATRACURIUM BESILATE [Suspect]
     Active Substance: ATRACURIUM BESYLATE
     Indication: MECHANICAL VENTILATION
     Route: 042
     Dates: start: 20150324, end: 20150324
  5. ONDANSETRON [Concomitant]
     Active Substance: ONDANSETRON
     Indication: GENERAL ANAESTHESIA
     Route: 042
     Dates: start: 20150324

REACTIONS (1)
  - Death [Fatal]

NARRATIVE: CASE EVENT DATE: 20150324
